FAERS Safety Report 8183739-4 (Version None)
Quarter: 2012Q1

REPORT INFORMATION
  Report Type: 
  Country: None (occurrence: None)
  Receive Date: 20120305
  Receipt Date: 20120223
  Transmission Date: 20120608
  Serious: Yes (Other)
  Sender: FDA-Public Use
  Company Number: PHHY2012MX015815

PATIENT
  Age: 22 Year
  Sex: Female

DRUGS (4)
  1. HYDROXYUREA [Concomitant]
     Indication: ANAEMIA
     Dosage: 500 MG DAILY
  2. VITAMIN B COMPLEX CAP [Concomitant]
     Indication: ANAEMIA
  3. FOLIC ACID [Concomitant]
     Indication: ANAEMIA
  4. EXJADE [Suspect]
     Indication: IRON OVERLOAD
     Dosage: 1 DF, DAILY
     Dates: start: 20111201, end: 20120222

REACTIONS (5)
  - PAIN IN JAW [None]
  - BONE PAIN [None]
  - HEPATIC PAIN [None]
  - FOOT FRACTURE [None]
  - TOOTH LOSS [None]
